FAERS Safety Report 8790029 (Version 2)
Quarter: 2013Q3

REPORT INFORMATION
  Report Type: Report from Study
  Country: JP (occurrence: JP)
  Receive Date: 20120917
  Receipt Date: 20130917
  Transmission Date: 20140515
  Serious: Yes (Other)
  Sender: FDA-Public Use
  Company Number: JP-VERTEX PHARMACEUTICAL INC.-2012-021003

PATIENT
  Age: 59 Year
  Sex: Female

DRUGS (21)
  1. VX-950 (TELAPREVIR) [Suspect]
     Indication: CHRONIC HEPATITIS C
     Dosage: 2250 MG, QD
     Route: 048
     Dates: start: 20120525, end: 20120607
  2. VX-950 (TELAPREVIR) [Suspect]
     Dosage: 1500 MG, QD
     Route: 048
     Dates: start: 20120608, end: 20120816
  3. REBETOL [Suspect]
     Indication: CHRONIC HEPATITIS C
     Dosage: 1000 MG, QD
     Route: 048
     Dates: start: 20120525, end: 20120607
  4. REBETOL [Suspect]
     Dosage: 800 MG, QD
     Route: 048
     Dates: start: 20120608, end: 20120614
  5. REBETOL [Suspect]
     Dosage: 600 MG, QD
     Route: 048
     Dates: start: 20120615, end: 20120628
  6. REBETOL [Suspect]
     Dosage: 400 MG, QD
     Route: 048
     Dates: start: 20120629
  7. PEGINTRON [Suspect]
     Indication: CHRONIC HEPATITIS C
     Dosage: 1.35 ?G/KG, QW
     Route: 058
     Dates: start: 20120525, end: 20120601
  8. PEGINTRON [Suspect]
     Dosage: 0.7 ?G/KG, QW
     Route: 058
     Dates: start: 20120608
  9. LOXONIN [Concomitant]
     Dosage: 60 MG/DAY, PRN
     Route: 048
     Dates: start: 20120526, end: 20120601
  10. REBAMIPIDE [Concomitant]
     Dosage: 100 MG, QD
     Route: 048
     Dates: start: 20120526, end: 20120601
  11. ANTEBATE [Concomitant]
     Dosage: 10 G, QD
     Route: 061
     Dates: start: 20120528, end: 20120817
  12. TALION [Concomitant]
     Dosage: 20 MG, QD
     Route: 048
     Dates: start: 20120528, end: 20120705
  13. ATARAX [Concomitant]
     Dosage: 25 MG, QD
     Route: 048
     Dates: start: 20120531
  14. ATARAX [Concomitant]
     Dosage: 25 MG/DAY, PRN
     Route: 048
  15. PREDNISOLONE [Concomitant]
     Dosage: 5 MG, QD
     Route: 048
     Dates: start: 20120602, end: 20120605
  16. PREDNISOLONE [Concomitant]
     Dosage: 10 MG, QD
     Route: 048
     Dates: start: 20120713, end: 20120719
  17. PREDNISOLONE [Concomitant]
     Dosage: 5 MG, QD
     Route: 048
     Dates: start: 20120720, end: 20120726
  18. ALLELOCK [Concomitant]
     Dosage: 10 MG, QD
     Route: 048
     Dates: start: 20120706
  19. CELESTAMINE [Concomitant]
     Dosage: 1 DF, PRN
     Route: 048
     Dates: start: 20120706
  20. BONALON [Concomitant]
     Dosage: 35 MG/DAY/ONCE A WEEK
     Route: 048
     Dates: start: 20120720
  21. ALLOPURINOL [Concomitant]
     Dosage: 200 MG, QD
     Route: 048

REACTIONS (1)
  - Renal impairment [Recovered/Resolved]
